FAERS Safety Report 7217019-8 (Version None)
Quarter: 2011Q1

REPORT INFORMATION
  Report Type: 
  Country: None (occurrence: None)
  Receive Date: 20110105
  Receipt Date: 20110105
  Transmission Date: 20110831
  Serious: Yes (Life-Threatening)
  Sender: FDA-Public Use
  Company Number: None

PATIENT
  Age: 54 Year
  Sex: Female
  Weight: 81 kg

DRUGS (4)
  1. MEPERIDINE HCL [Suspect]
     Indication: COLONOSCOPY
     Dosage: 50 MG ONCE IV
     Route: 042
     Dates: start: 20101228, end: 20101228
  2. MEPERIDINE HCL [Suspect]
     Indication: SEDATION
     Dosage: 50 MG ONCE IV
     Route: 042
     Dates: start: 20101228, end: 20101228
  3. MIDAZOLAM HCL [Suspect]
     Indication: COLONOSCOPY
     Dosage: 3 MG ONCE IV
     Route: 042
     Dates: start: 20101228, end: 20101228
  4. MIDAZOLAM HCL [Suspect]
     Indication: SEDATION
     Dosage: 3 MG ONCE IV
     Route: 042
     Dates: start: 20101228, end: 20101228

REACTIONS (4)
  - HYPOTENSION [None]
  - HYPOXIA [None]
  - MENTAL STATUS CHANGES [None]
  - ANAPHYLACTIC REACTION [None]
